FAERS Safety Report 21289537 (Version 1)
Quarter: 2022Q3

REPORT INFORMATION
  Report Type: Spontaneous
  Country: DE (occurrence: DE)
  Receive Date: 20220902
  Receipt Date: 20220902
  Transmission Date: 20221027
  Serious: Yes (Congenital Anomaly)
  Sender: FDA-Public Use
  Company Number: DE-EMBRYOTOX-202203742

PATIENT
  Weight: 3.43 kg

DRUGS (6)
  1. DULOXETINE HYDROCHLORIDE [Suspect]
     Active Substance: DULOXETINE HYDROCHLORIDE
     Indication: Depression
     Dosage: UNK UNK, UNKNOWN
     Route: 064
     Dates: start: 20210601, end: 20220217
  2. DULOXETINE HYDROCHLORIDE [Suspect]
     Active Substance: DULOXETINE HYDROCHLORIDE
     Indication: Depression
     Dosage: UNK UNK, UNKNOWN
     Route: 064
     Dates: start: 20210601, end: 20220217
  3. AZATHIOPRINE [Suspect]
     Active Substance: AZATHIOPRINE
     Indication: Crohn^s disease
     Dosage: 50 MG/D
     Route: 064
     Dates: start: 20210601, end: 20220217
  4. AZATHIOPRINE [Suspect]
     Active Substance: AZATHIOPRINE
     Indication: Crohn^s disease
     Dosage: 50 MG/D
     Route: 064
     Dates: start: 20210601, end: 20220217
  5. PROTAPHANE [Concomitant]
     Active Substance: INSULIN HUMAN
     Indication: Gestational diabetes
     Dosage: 14 [IE/D (8-0-0-6) ]
     Route: 064
  6. PROTAPHANE [Concomitant]
     Active Substance: INSULIN HUMAN
     Indication: Gestational diabetes
     Dosage: 14 [IE/D (8-0-0-6) ]
     Route: 064

REACTIONS (2)
  - Ventricular septal defect [Not Recovered/Not Resolved]
  - Foetal exposure during pregnancy [Unknown]
